FAERS Safety Report 8637956 (Version 3)
Quarter: 2013Q1

REPORT INFORMATION
  Report Type: Spontaneous
  Country: US (occurrence: US)
  Receive Date: 20120627
  Receipt Date: 20130222
  Transmission Date: 20140127
  Serious: Yes (Hospitalization)
  Sender: FDA-Public Use
  Company Number: US-B.I. PHARMACEUTICALS,INC./RIDGEFIELD-2012-BP-14087BP

PATIENT
  Age: 77 Year
  Sex: Male
  Weight: 85.73 kg

DRUGS (6)
  1. PRADAXA [Suspect]
     Indication: ANTICOAGULANT THERAPY
     Dosage: 300 MG
     Route: 048
     Dates: start: 20110218, end: 20110317
  2. PRADAXA [Suspect]
     Indication: ATRIAL FIBRILLATION
  3. LEVOXYL [Concomitant]
  4. FINASTERIDE [Concomitant]
  5. TOPROL/METOPROLOL [Concomitant]
  6. PRAVASTATIN [Concomitant]

REACTIONS (1)
  - Duodenal ulcer haemorrhage [Unknown]
